FAERS Safety Report 9617075 (Version 1)
Quarter: 2013Q4

REPORT INFORMATION
  Report Type: Spontaneous
  Country: US (occurrence: None)
  Receive Date: 20131011
  Receipt Date: 20131011
  Transmission Date: 20140711
  Serious: Yes (Hospitalization)
  Sender: FDA-Public Use
  Company Number: None

PATIENT
  Age: 30 Year
  Sex: Female
  Weight: 71.22 kg

DRUGS (1)
  1. MISOPROSTOL [Suspect]
     Indication: ABORTION
     Dosage: 4 PILLS, TAKEN BY MOUTH
     Route: 048
     Dates: start: 20131001, end: 20131002

REACTIONS (9)
  - Haemorrhage [None]
  - Muscle spasms [None]
  - Eye oedema [None]
  - Hypertension [None]
  - Chest discomfort [None]
  - Asthenia [None]
  - Vision blurred [None]
  - Chest pain [None]
  - Exposure during pregnancy [None]
